FAERS Safety Report 17489050 (Version 1)
Quarter: 2020Q1

REPORT INFORMATION
  Report Type: Spontaneous
  Country: US (occurrence: US)
  Receive Date: 20200303
  Receipt Date: 20200303
  Transmission Date: 20200409
  Serious: Yes (Hospitalization, Other)
  Sender: FDA-Public Use
  Company Number: None

PATIENT
  Age: 57 Year
  Sex: Female
  Weight: 58.95 kg

DRUGS (3)
  1. DEXAMETHASONE 0.5MG/5 ML [Concomitant]
  2. LORAZEPAM 0.5 MG [Concomitant]
     Active Substance: LORAZEPAM
  3. AFINITOR [Suspect]
     Active Substance: EVEROLIMUS
     Indication: BREAST CANCER
     Route: 048
     Dates: start: 20200207

REACTIONS (3)
  - Stomatitis [None]
  - Fall [None]
  - Fatigue [None]
